FAERS Safety Report 15936871 (Version 1)
Quarter: 2019Q1

REPORT INFORMATION
  Report Type: Other
  Country: ES (occurrence: ES)
  Receive Date: 20190208
  Receipt Date: 20190208
  Transmission Date: 20190417
  Serious: Yes (Other)
  Sender: FDA-Public Use
  Company Number: ES-APOTEX-2019AP007234

PATIENT
  Age: 74 Year
  Sex: Male

DRUGS (2)
  1. METOCLOPRAMIDA                     /00041901/ [Suspect]
     Active Substance: METOCLOPRAMIDE
     Indication: VOMITING
     Dosage: 10 MG, TID (EVERY 8 HOURS)
     Route: 042
     Dates: start: 20170601, end: 20170609
  2. MIRTAZAPINE. [Suspect]
     Active Substance: MIRTAZAPINE
     Indication: ANXIETY
     Dosage: 15 MG, QD
     Route: 048
     Dates: start: 20170529

REACTIONS (1)
  - Eosinophilia [Recovered/Resolved]

NARRATIVE: CASE EVENT DATE: 20170602
